FAERS Safety Report 5055745-X (Version None)
Quarter: 2006Q3

REPORT INFORMATION
  Report Type: 
  Country: None (occurrence: None)
  Receive Date: 20060713
  Receipt Date: 20060703
  Transmission Date: 20061208
  Serious: Yes (Other)
  Sender: FDA-Public Use
  Company Number: HQWYE332109SEP05

PATIENT
  Age: 51 Year
  Sex: Female

DRUGS (1)
  1. PREMPRO [Suspect]
     Indication: HORMONE REPLACEMENT THERAPY
     Dosage: ORAL
     Route: 048
     Dates: start: 20000301, end: 20011101

REACTIONS (9)
  - BREAST CANCER FEMALE [None]
  - BREAST CANCER IN SITU [None]
  - BREAST CANCER METASTATIC [None]
  - BREAST FIBROSIS [None]
  - BREAST MICROCALCIFICATION [None]
  - GALLBLADDER POLYP [None]
  - INFLAMMATION [None]
  - LYMPH NODE CANCER METASTATIC [None]
  - NUCLEAR MAGNETIC RESONANCE IMAGING ABNORMAL [None]
